FAERS Safety Report 9192936 (Version 1)
Quarter: 2013Q1

REPORT INFORMATION
  Report Type: Spontaneous
  Country: US (occurrence: US)
  Receive Date: 20130327
  Receipt Date: 20130327
  Transmission Date: 20140127
  Serious: Yes (Hospitalization)
  Sender: FDA-Public Use
  Company Number: US-ROXANE LABORATORIES, INC.-2013-RO-00426RO

PATIENT
  Age: 69 Year
  Sex: Female
  Weight: 98 kg

DRUGS (2)
  1. PREDNISONE [Suspect]
     Indication: IDIOPATHIC PULMONARY FIBROSIS
  2. OXYGEN [Concomitant]
     Indication: IDIOPATHIC PULMONARY FIBROSIS

REACTIONS (1)
  - Idiopathic pulmonary fibrosis [Recovered/Resolved]
